FAERS Safety Report 9826469 (Version 1)
Quarter: 2014Q1

REPORT INFORMATION
  Report Type: Spontaneous
  Country: US (occurrence: US)
  Receive Date: 20140117
  Receipt Date: 20140117
  Transmission Date: 20141002
  Serious: No
  Sender: FDA-Public Use
  Company Number: US-009507513-1401USA007257

PATIENT
  Age: 24 Year
  Sex: Female
  Weight: 66.21 kg

DRUGS (2)
  1. IMPLANON [Suspect]
     Indication: CONTRACEPTION
     Dosage: UNK
     Route: 059
     Dates: start: 20110414
  2. ASPIRIN [Concomitant]

REACTIONS (2)
  - Burning sensation [Unknown]
  - Abdominal pain [Unknown]
